FAERS Safety Report 15469335 (Version 1)
Quarter: 2018Q4

REPORT INFORMATION
  Report Type: Spontaneous
  Country: US (occurrence: US)
  Receive Date: 20181005
  Receipt Date: 20181005
  Transmission Date: 20190205
  Serious: No
  Sender: FDA-Public Use
  Company Number: US-BAYER-2018-185625

PATIENT
  Age: 13 Year
  Sex: Female

DRUGS (1)
  1. MENOSTAR [Suspect]
     Active Substance: ESTRADIOL
     Dosage: UNK
     Route: 062
     Dates: start: 201806

REACTIONS (3)
  - Application site eczema [None]
  - Product use issue [None]
  - Dermatitis contact [None]

NARRATIVE: CASE EVENT DATE: 201806
